FAERS Safety Report 18337154 (Version 2)
Quarter: 2020Q4

REPORT INFORMATION
  Report Type: Other
  Country: AT (occurrence: AT)
  Receive Date: 20201001
  Receipt Date: 20201201
  Transmission Date: 20210113
  Serious: Yes (Hospitalization)
  Sender: FDA-Public Use
  Company Number: AT-ROCHE-2688711

PATIENT
  Age: 62 Year
  Sex: Female
  Weight: 80 kg

DRUGS (64)
  1. HYDAL [Concomitant]
     Active Substance: HYDROMORPHONE HYDROCHLORIDE
     Indication: BACK PAIN
     Dosage: ONGOING = NOT CHECKED
     Dates: start: 20181227, end: 20190907
  2. LIXIANA [Concomitant]
     Active Substance: EDOXABAN TOSYLATE
     Indication: PULMONARY EMBOLISM
     Dosage: ONGOING = NOT CHECKED
     Dates: start: 20190315, end: 20190907
  3. CORTISON [Concomitant]
     Active Substance: CORTISONE ACETATE
     Indication: RESPIRATORY TRACT INFECTION
     Dosage: ONGOING = NOT CHECKED
     Dates: start: 20190615, end: 20190615
  4. TRITTICO [Concomitant]
     Active Substance: TRAZODONE HYDROCHLORIDE
  5. VENLAFAB [Concomitant]
     Active Substance: VENLAFAXINE HYDROCHLORIDE
     Dates: start: 20190315, end: 20190907
  6. PARACODIN [Concomitant]
     Indication: COUGH
     Dates: start: 20171212, end: 20180115
  7. NOVALGIN (AUSTRIA) [Concomitant]
     Indication: HEPATIC PAIN
     Dosage: ONGOING = CHECKED
     Dates: start: 20170327, end: 20191003
  8. NOVALGIN (AUSTRIA) [Concomitant]
     Indication: BACK PAIN
     Dosage: ONGOING = NOT CHECKED
     Dates: start: 20171212, end: 20190907
  9. LYRICA [Concomitant]
     Active Substance: PREGABALIN
     Indication: BACK PAIN
     Dosage: ONGOING = CHECKED
  10. KALIORAL (AUSTRIA) [Concomitant]
  11. PASPERTIN [Concomitant]
     Dates: start: 20171212, end: 20190907
  12. FORTECORTIN [Concomitant]
     Active Substance: DEXAMETHASONE
     Dosage: ONGOING = CHECKED
     Dates: start: 20190215, end: 20190907
  13. MEXALEN [Concomitant]
     Active Substance: ACETAMINOPHEN
     Dates: start: 20170327, end: 20170327
  14. HYDAL [Concomitant]
     Active Substance: HYDROMORPHONE HYDROCHLORIDE
     Dates: start: 20180628, end: 20190226
  15. NOVALGIN (AUSTRIA) [Concomitant]
     Indication: BACK PAIN
     Dosage: ONGOING = CHECKED
     Dates: start: 20190315, end: 20190907
  16. NOVALGIN (AUSTRIA) [Concomitant]
     Indication: RESPIRATORY TRACT INFECTION
     Dates: start: 20190615, end: 20190615
  17. VENLAFAB [Concomitant]
     Active Substance: VENLAFAXINE HYDROCHLORIDE
     Dosage: ONGOING = NOT CHECKED
     Dates: start: 20190315, end: 20190907
  18. CONCOR COR [Concomitant]
     Active Substance: BISOPROLOL FUMARATE
     Dosage: ONGOING = CHECKED
     Dates: end: 20190907
  19. SUCRALFAT [Concomitant]
     Active Substance: SUCRALFATE
     Dosage: ONGOING = NOT CHECKED
     Dates: end: 20190907
  20. KYTRIL [Concomitant]
     Active Substance: GRANISETRON HYDROCHLORIDE
     Dates: start: 20171212, end: 20180813
  21. ULSAL [Concomitant]
     Active Substance: RANITIDINE HYDROCHLORIDE
     Dates: start: 20170327, end: 20180813
  22. NOVALGIN (AUSTRIA) [Concomitant]
     Indication: BACK PAIN
     Dates: start: 20171212, end: 20190907
  23. TRASTUZUMAB. [Suspect]
     Active Substance: TRASTUZUMAB
     Indication: HER2 POSITIVE BREAST CANCER
     Dosage: RECEIVED DOSE ON 21/NOV/2017, MOST RECENT DOSE PRIOR TO THE EVENT:  7/MAY/2019, 27/MAY/2019
     Route: 042
     Dates: start: 20170306
  24. PASPERTIN [Concomitant]
     Dosage: ONGOING = NOT CHECKED
     Dates: start: 20171212, end: 20190907
  25. LAEVOLAC [Concomitant]
     Active Substance: LACTULOSE
     Dates: start: 20171212, end: 20190907
  26. NOVALGIN (AUSTRIA) [Concomitant]
     Indication: HEPATIC PAIN
     Dosage: ONGOING = NOT CHECKED
     Dates: start: 20170327, end: 20191003
  27. BUPRENORPHINE. [Concomitant]
     Active Substance: BUPRENORPHINE
  28. LOVENOX [Concomitant]
     Active Substance: ENOXAPARIN SODIUM
     Dates: start: 20180126, end: 20180208
  29. FORTECORTIN [Concomitant]
     Active Substance: DEXAMETHASONE
     Dates: start: 20170829, end: 20180813
  30. ZOLPIDEM [Concomitant]
     Active Substance: ZOLPIDEM TARTRATE
     Dates: start: 20190215, end: 20190315
  31. TEMESTA [Concomitant]
     Dates: start: 20190226
  32. SOLU-DACORTIN [Concomitant]
     Active Substance: PREDNISOLONE SODIUM SUCCINATE
     Indication: CHILLS
     Dates: start: 20170306, end: 20170306
  33. PERTUZUMAB. [Suspect]
     Active Substance: PERTUZUMAB
     Indication: HER2 POSITIVE BREAST CANCER
     Dosage: RECEIVED DOSE ON 21/NOV/2017
     Route: 042
     Dates: start: 20170306
  34. CAPECITABINE. [Suspect]
     Active Substance: CAPECITABINE
     Indication: HER2 POSITIVE BREAST CANCER
     Dosage: RECEIVED DOSE ON 10/SEP/2018, MOST RECENT DOSE PRIOR TO THE EVENT: 20190527
     Route: 048
     Dates: start: 20180904
  35. PANTOLOC [Concomitant]
     Active Substance: PANTOPRAZOLE SODIUM
     Dosage: ONGOING = CHECKED
     Dates: start: 20170302
  36. TEMESTA [Concomitant]
     Dosage: ONGOING = CHECKED
     Dates: start: 20190226
  37. MIRTAZAPIN [Concomitant]
     Active Substance: MIRTAZAPINE
     Dosage: ONGOING = CHECKED
     Dates: start: 20190315, end: 20190907
  38. LASIX [Concomitant]
     Active Substance: FUROSEMIDE
     Dates: end: 20190907
  39. ULSAL [Concomitant]
     Active Substance: RANITIDINE HYDROCHLORIDE
     Indication: CHILLS
     Dates: start: 20170306, end: 20170306
  40. NOVALGIN (AUSTRIA) [Concomitant]
     Dates: start: 20190509, end: 20190509
  41. VINORELBINE [Suspect]
     Active Substance: VINORELBINE TARTRATE
     Indication: HER2 POSITIVE BREAST CANCER
     Dosage: FREQUENCY: OTHER, RECEIVED DOSE ON 30/MAY/2017, MOST RECENT DOSE PRIOR TO THE EVENT: 27/JUN/2017
     Route: 048
     Dates: start: 20170306
  42. MIRTAZAPIN [Concomitant]
     Active Substance: MIRTAZAPINE
     Dosage: ONGOING = NOT CHECKED
     Dates: start: 20190315, end: 20190907
  43. LASIX [Concomitant]
     Active Substance: FUROSEMIDE
     Dosage: ONGOING = NOT CHECKED
     Dates: end: 20190907
  44. ZYRTEC (AUSTRIA) [Concomitant]
     Indication: PRURITUS
     Dates: start: 20170327, end: 20171215
  45. CLAVAMOX [Concomitant]
     Active Substance: AMOXICILLIN\CLAVULANATE POTASSIUM
     Indication: VASCULAR DEVICE INFECTION
     Dates: start: 20180215, end: 20180215
  46. DEXAMETHASON [Concomitant]
     Active Substance: DEXAMETHASONE
     Dates: start: 20170829, end: 20180813
  47. HYDAL [Concomitant]
     Active Substance: HYDROMORPHONE HYDROCHLORIDE
     Indication: BACK PAIN
     Dates: start: 20181227, end: 20190907
  48. HYDAL [Concomitant]
     Active Substance: HYDROMORPHONE HYDROCHLORIDE
     Dates: start: 20180403, end: 20180628
  49. FENISTIL [Concomitant]
     Active Substance: DIMETHINDENE
     Indication: CHILLS
     Dates: start: 20170306, end: 20170306
  50. TRASTUZUMAB EMTANSINE [Suspect]
     Active Substance: ADO-TRASTUZUMAB EMTANSINE
     Indication: HER2 POSITIVE BREAST CANCER
     Dosage: RECEIVED ON 24/APR/2018,  MOST RECENT DOSE PRIOR TO THE EVENT: 15/MAY/2018
     Route: 042
     Dates: start: 20171212
  51. NOVALGIN (AUSTRIA) [Concomitant]
     Indication: BACK PAIN
     Dosage: ONGOING = NOT CHECKED
     Dates: start: 20190315, end: 20190907
  52. FORTECORTIN [Concomitant]
     Active Substance: DEXAMETHASONE
     Dosage: ONGOING = NOT CHECKED
     Dates: start: 20190215, end: 20190907
  53. LIXIANA [Concomitant]
     Active Substance: EDOXABAN TOSYLATE
     Indication: PULMONARY EMBOLISM
     Dates: start: 20190315, end: 20190907
  54. LYRICA [Concomitant]
     Active Substance: PREGABALIN
     Indication: BACK PAIN
     Dates: start: 20181227, end: 20190226
  55. DAFLON [Concomitant]
     Dates: end: 20190907
  56. AUGMENTIN [Concomitant]
     Active Substance: AMOXICILLIN\CLAVULANATE POTASSIUM
     Indication: RESPIRATORY TRACT INFECTION
     Dates: start: 20190509, end: 20190516
  57. BAMBEC [Concomitant]
     Active Substance: BAMBUTEROL HYDROCHLORIDE
  58. EMEND [Concomitant]
     Active Substance: APREPITANT
     Dates: start: 20180127, end: 20180815
  59. LOVENOX [Concomitant]
     Active Substance: ENOXAPARIN SODIUM
     Dates: start: 20190312, end: 20190315
  60. FORTECORTIN [Concomitant]
     Active Substance: DEXAMETHASONE
     Dates: start: 20180127, end: 20180313
  61. PANTOLOC [Concomitant]
     Active Substance: PANTOPRAZOLE SODIUM
     Dates: start: 20170302
  62. PARACODIN [Concomitant]
     Dates: start: 20190510
  63. DOXYCYCLIN [Concomitant]
     Active Substance: DOXYCYCLINE
     Indication: RESPIRATORY TRACT INFECTION
     Dates: start: 20190502, end: 20190509
  64. FENISTIL [Concomitant]
     Active Substance: DIMETHINDENE
     Dates: start: 20170327, end: 20180313

REACTIONS (2)
  - Dyspnoea [Not Recovered/Not Resolved]
  - Respiratory tract infection [Recovered/Resolved]

NARRATIVE: CASE EVENT DATE: 20190415
